FAERS Safety Report 15785286 (Version 1)
Quarter: 2019Q1

REPORT INFORMATION
  Report Type: Spontaneous
  Country: CA (occurrence: CA)
  Receive Date: 20190102
  Receipt Date: 20190102
  Transmission Date: 20190417
  Serious: Yes (Other)
  Sender: FDA-Public Use
  Company Number: None

PATIENT
  Age: 43 Year
  Sex: Female
  Weight: 101.25 kg

DRUGS (6)
  1. TRESIBA [Concomitant]
     Active Substance: INSULIN DEGLUDEC
  2. FIASP [Concomitant]
     Active Substance: INSULIN ASPART
  3. PEPCID [Concomitant]
     Active Substance: FAMOTIDINE
  4. GAVISCON [Concomitant]
     Active Substance: ALUMINUM HYDROXIDE\MAGNESIUM CARBONATE
  5. OZEMPIC [Suspect]
     Active Substance: SEMAGLUTIDE
     Indication: DIABETES MELLITUS
     Dosage: ?          QUANTITY:.25 INJECTION(S);OTHER FREQUENCY:WEEKLY;OTHER ROUTE:INJECTION?
     Dates: start: 20181216
  6. FREESTYLE LIBRE [Concomitant]

REACTIONS (3)
  - Gastrooesophageal reflux disease [None]
  - Abdominal pain upper [None]
  - Nausea [None]

NARRATIVE: CASE EVENT DATE: 20181217
